FAERS Safety Report 25195826 (Version 1)
Quarter: 2025Q2

REPORT INFORMATION
  Report Type: Spontaneous
  Country: US (occurrence: US)
  Receive Date: 20250415
  Receipt Date: 20250415
  Transmission Date: 20250717
  Serious: No
  Sender: SANOFI AVENTIS
  Company Number: US-SA-2025SA104795

PATIENT
  Sex: Female
  Weight: 68.18 kg

DRUGS (10)
  1. DUPIXENT [Suspect]
     Active Substance: DUPILUMAB
     Indication: Dermatitis atopic
     Dosage: 300 MG, QOW
     Route: 058
  2. PREDNISONE [Concomitant]
     Active Substance: PREDNISONE
  3. MYCOPHENOLATE MOFETIL [Concomitant]
     Active Substance: MYCOPHENOLATE MOFETIL
  4. TACROLIMUS [Concomitant]
     Active Substance: TACROLIMUS
  5. CARVEDILOL [Concomitant]
     Active Substance: CARVEDILOL
  6. HUMULIN R [Concomitant]
     Active Substance: INSULIN HUMAN
  7. HUMULIN N [Concomitant]
     Active Substance: INSULIN HUMAN
  8. COLLAGEN [Concomitant]
     Active Substance: COLLAGEN
  9. DESONIDE [Concomitant]
     Active Substance: DESONIDE
  10. CALCIUM [Concomitant]
     Active Substance: CALCIUM

REACTIONS (4)
  - Decreased immune responsiveness [Unknown]
  - Cough [Unknown]
  - Nasopharyngitis [Unknown]
  - Injection site pain [Unknown]
